FAERS Safety Report 7346736-4 (Version None)
Quarter: 2011Q1

REPORT INFORMATION
  Report Type: 
  Country: None (occurrence: None)
  Receive Date: 20110311
  Receipt Date: 20110302
  Transmission Date: 20110831
  Serious: Yes (Death, Life-Threatening, Hospitalization, Disabling)
  Sender: FDA-Public Use
  Company Number: ES-CELGENEUS-144-21880-10021835

PATIENT
  Sex: Male
  Weight: 67 kg

DRUGS (6)
  1. DEXAMETHASONE [Suspect]
     Indication: MULTIPLE MYELOMA
     Dosage: 40 MILLIGRAM
     Route: 048
     Dates: start: 20091013
  2. DEXAMETHASONE [Suspect]
     Dosage: 40 MILLIGRAM
     Route: 048
     Dates: start: 20091110
  3. HEPARIN [Concomitant]
     Indication: PROPHYLAXIS
     Route: 065
  4. REVLIMID [Suspect]
     Indication: MULTIPLE MYELOMA
     Dosage: 25 MILLIGRAM
     Route: 048
     Dates: start: 20091013
  5. EPOGEN [Suspect]
     Route: 065
  6. REVLIMID [Suspect]
     Dosage: 25 MILLIGRAM
     Route: 048
     Dates: start: 20091110

REACTIONS (9)
  - PSEUDOMONAS INFECTION [None]
  - EYE INFECTION [None]
  - ULCERATIVE KERATITIS [None]
  - NEOPLASM MALIGNANT [None]
  - PULMONARY EMBOLISM [None]
  - RESPIRATORY TRACT INFECTION [None]
  - MULTIPLE MYELOMA [None]
  - PULMONARY HYPERTENSION [None]
  - AMAUROSIS [None]
